FAERS Safety Report 10403897 (Version 2)
Quarter: 2014Q3

REPORT INFORMATION
  Report Type: Spontaneous
  Country: US (occurrence: None)
  Receive Date: 20130815
  Receipt Date: 20140815
  Transmission Date: 20150326
  Serious: Yes (Hospitalization, Other)
  Sender: FDA-Public Use
  Company Number: ADR-2012-02103

PATIENT
  Age: 11 Year
  Sex: Male

DRUGS (1)
  1. LIORESAL [Suspect]
     Active Substance: BACLOFEN

REACTIONS (6)
  - Wound secretion [None]
  - Muscle spasticity [None]
  - Implant site infection [None]
  - Wound dehiscence [None]
  - Wound infection staphylococcal [None]
  - Wound infection [None]

NARRATIVE: CASE EVENT DATE: 20121108
